FAERS Safety Report 8572077-3 (Version None)
Quarter: 2012Q3

REPORT INFORMATION
  Report Type: 
  Country: None (occurrence: None)
  Receive Date: 20120806
  Receipt Date: 20120724
  Transmission Date: 20120928
  Serious: Yes (Other)
  Sender: FDA-Public Use
  Company Number: ES-AMGEN-ESPSP2012038121

PATIENT
  Age: 67 Year
  Sex: Male
  Weight: 85 kg

DRUGS (3)
  1. METHOTREXATE [Concomitant]
     Dosage: UNK
     Route: 048
     Dates: start: 20100601, end: 20120501
  2. ACFOL [Concomitant]
     Dosage: UNK
     Route: 048
     Dates: start: 20100601, end: 20120501
  3. ENBREL [Suspect]
     Indication: PSORIATIC ARTHROPATHY
     Dosage: 25 MG, 2X/WEEK
     Route: 058
     Dates: start: 20100301, end: 20120501

REACTIONS (1)
  - LUNG NEOPLASM MALIGNANT [None]
